FAERS Safety Report 8875420 (Version 3)
Quarter: 2013Q4

REPORT INFORMATION
  Report Type: Report from Study
  Country: GB (occurrence: GB)
  Receive Date: 20121030
  Receipt Date: 20131115
  Transmission Date: 20140711
  Serious: Yes (Death, Other)
  Sender: FDA-Public Use
  Company Number: GB-009507513-1003USA00780

PATIENT
  Age: 65 Year
  Sex: Female
  Weight: 66 kg

DRUGS (9)
  1. EZETIMIBE (+) SIMVASTATIN [Suspect]
     Indication: ACUTE CORONARY SYNDROME
     Dosage: 10-40 MG, QD
     Route: 048
     Dates: start: 20090701
  2. BISOPROLOL [Concomitant]
     Dosage: TOTAL DAILY DOSE: 5 MG
     Route: 048
     Dates: start: 20090630
  3. ASPIRIN [Concomitant]
     Dosage: TOTAL DAILY DOSE: 75 MG
     Route: 048
     Dates: start: 20090701
  4. HYDROXYUREA [Concomitant]
     Dosage: 1000-1500 MG,QD
     Route: 048
     Dates: start: 20090701
  5. ISOSORBIDE MONONITRATE [Concomitant]
     Dosage: 40 MG, QD
     Route: 048
     Dates: start: 20090701
  6. LANSOPRAZOLE [Concomitant]
     Dosage: TOTAL DAILY DOSE: 15 MG
     Route: 048
     Dates: start: 20090701
  7. QUININE SULFATE [Concomitant]
     Dosage: TOTAL DAILY DOSE: 300 MG
     Route: 048
     Dates: start: 20090701
  8. RAMIPRIL [Concomitant]
     Dosage: TOTAL DAILY DOSE: 10 MG
     Route: 048
     Dates: start: 20090701
  9. WARFARIN SODIUM [Concomitant]
     Dosage: TOTAL DAILY DOSE: 6 MG
     Route: 048
     Dates: start: 20090701

REACTIONS (6)
  - Squamous cell carcinoma [Recovered/Resolved]
  - Squamous cell carcinoma [Recovered/Resolved]
  - Squamous cell carcinoma [Unknown]
  - Squamous cell carcinoma [Recovered/Resolved]
  - Squamous cell carcinoma [Recovered/Resolved]
  - Squamous cell carcinoma [Fatal]
